FAERS Safety Report 8888311 (Version 2)
Quarter: 2012Q4

REPORT INFORMATION
  Report Type: 
  Country: US (occurrence: US)
  Receive Date: 20121106
  Receipt Date: 20121213
  Transmission Date: 20130627
  Serious: No
  Sender: FDA-Public Use
  Company Number: US-PFIZER INC-2012273369

PATIENT
  Age: 58 Year
  Sex: Female
  Weight: 76.19 kg

DRUGS (9)
  1. FLECTOR [Suspect]
     Indication: PAIN
     Dosage: UNK
     Route: 062
  2. FLECTOR [Suspect]
     Indication: FIBROMYALGIA
  3. FLECTOR [Suspect]
     Indication: ARTHRITIS
  4. FLECTOR [Suspect]
     Indication: DEGENERATIVE DISC DISEASE
  5. TYLENOL W/CODEINE NO. 3 [Suspect]
     Indication: PAIN
     Dosage: 300/30 mg, daily
  6. TYLENOL W/CODEINE NO. 3 [Suspect]
     Indication: FIBROMYALGIA
  7. TYLENOL W/CODEINE NO. 3 [Suspect]
     Indication: ARTHRITIS
  8. TYLENOL W/CODEINE NO. 3 [Suspect]
     Indication: DEGENERATIVE DISC DISEASE
  9. ARTHROTEC [Concomitant]
     Indication: ARTHRITIS
     Dosage: 75 mg, daily

REACTIONS (2)
  - Drug ineffective [Unknown]
  - Osteoarthritis [Not Recovered/Not Resolved]
